FAERS Safety Report 6020637-6 (Version None)
Quarter: 2008Q4

REPORT INFORMATION
  Report Type: 
  Country: None (occurrence: None)
  Receive Date: 20081222
  Receipt Date: 20081208
  Transmission Date: 20090506
  Serious: Yes (Hospitalization, Other)
  Sender: FDA-Public Use
  Company Number: 230025K08IRL

PATIENT
  Age: 32 Year
  Sex: Female
  Weight: 51 kg

DRUGS (2)
  1. REBIF [Suspect]
     Indication: MULTIPLE SCLEROSIS
     Dosage: 44 MCG, 3 IN 1 WEEKS
     Dates: start: 19981108, end: 20080801
  2. TEGRETOL [Concomitant]

REACTIONS (2)
  - ATAXIA [None]
  - GRAND MAL CONVULSION [None]
